FAERS Safety Report 5776860-9 (Version None)
Quarter: 2008Q2

REPORT INFORMATION
  Report Type: 
  Country: None (occurrence: None)
  Receive Date: 20080616
  Receipt Date: 20080609
  Transmission Date: 20081010
  Serious: Yes (Hospitalization)
  Sender: FDA-Public Use
  Company Number: SP01937

PATIENT
  Age: 65 Year
  Sex: Female
  Weight: 73.4827 kg

DRUGS (1)
  1. OSMOPREP [Suspect]
     Indication: COLONOSCOPY
     Dosage: 32 TABLETS; ORAL
     Route: 048
     Dates: start: 20080114, end: 20080114

REACTIONS (9)
  - ASTHENIA [None]
  - DEPRESSION [None]
  - DIABETES MELLITUS [None]
  - HEART RATE INCREASED [None]
  - HYPERTENSION [None]
  - NAUSEA [None]
  - RENAL FAILURE [None]
  - VOMITING [None]
  - WEIGHT DECREASED [None]
